FAERS Safety Report 10170150 (Version 2)
Quarter: 2014Q2

REPORT INFORMATION
  Report Type: Spontaneous
  Country: US (occurrence: US)
  Receive Date: 20140513
  Receipt Date: 20140513
  Transmission Date: 20141212
  Serious: Yes (Other)
  Sender: FDA-Public Use
  Company Number: US-BANPHARM-20142646

PATIENT
  Age: 89 Year
  Sex: Female
  Weight: 48.99 kg

DRUGS (3)
  1. ALEVE LIQUID GELS 220 MG [Suspect]
     Indication: PAIN
     Dosage: 1 DF, QD,
     Route: 048
     Dates: start: 20140426, end: 20140429
  2. CHOLESTEROL MEDICATION [Concomitant]
  3. THYROID MEDICATION [Concomitant]

REACTIONS (2)
  - Cardiac flutter [Recovered/Resolved]
  - Drug ineffective [Unknown]
